FAERS Safety Report 11175474 (Version 1)
Quarter: 2015Q2

REPORT INFORMATION
  Report Type: Spontaneous
  Country: GB (occurrence: GB)
  Receive Date: 20150609
  Receipt Date: 20150609
  Transmission Date: 20150821
  Serious: Yes (Hospitalization)
  Sender: FDA-Public Use
  Company Number: GB-CIPLA LTD.-2015GB04428

PATIENT

DRUGS (10)
  1. INDORAMIN [Suspect]
     Active Substance: INDORAMIN
     Indication: PROPHYLAXIS
     Dosage: 20 MG, QD
     Route: 065
     Dates: start: 19971112
  2. ISOSORBIDE [Suspect]
     Active Substance: ISOSORBIDE
     Indication: PROPHYLAXIS
     Dosage: 90 MG, QD
     Route: 065
  3. ACZ885 VS PLACEBO (PLACEBO COMP-PLA+) [Suspect]
     Active Substance: CANAKINUMAB
     Indication: CARDIOVASCULAR EVENT PROPHYLAXIS
     Dosage: CODE NOT BROKEN
     Route: 058
     Dates: start: 20130102
  4. SPIRONOLACTONE. [Suspect]
     Active Substance: SPIRONOLACTONE
     Indication: OEDEMA
     Dosage: 25 MG, QD
     Route: 065
     Dates: start: 20150325
  5. FINASTERIDE. [Suspect]
     Active Substance: FINASTERIDE
     Indication: BENIGN PROSTATIC HYPERPLASIA
     Dosage: 1 MG, QD
     Route: 065
     Dates: start: 20010806
  6. BUMETANIDE. [Suspect]
     Active Substance: BUMETANIDE
     Indication: OEDEMA
     Dosage: 1 MG, QD
     Route: 065
     Dates: start: 20150323
  7. TAMSULOSIN [Suspect]
     Active Substance: TAMSULOSIN
     Indication: URINARY RETENTION
     Dosage: 400 MG, QD
     Route: 065
     Dates: start: 20150202
  8. ATORVASTATIN [Concomitant]
     Active Substance: ATORVASTATIN
     Indication: HYPERCHOLESTEROLAEMIA
     Dosage: 80 MG, QD
     Route: 065
     Dates: start: 20111209
  9. RIVAROXABAN [Concomitant]
     Active Substance: RIVAROXABAN
  10. BISOPROLOL [Suspect]
     Active Substance: BISOPROLOL
     Indication: HYPERTENSION
     Dosage: 5 MG, QD
     Route: 065
     Dates: start: 20111006

REACTIONS (2)
  - Head injury [None]
  - Laceration [Recovered/Resolved]

NARRATIVE: CASE EVENT DATE: 20150429
